FAERS Safety Report 9717086 (Version 2)
Quarter: 2013Q4

REPORT INFORMATION
  Report Type: Spontaneous
  Country: US (occurrence: US)
  Receive Date: 20131127
  Receipt Date: 20131127
  Transmission Date: 20140711
  Serious: No
  Sender: FDA-Public Use
  Company Number: US-GILEAD-2009-0020611

PATIENT
  Age: 54 Year
  Sex: Female
  Weight: 68.95 kg

DRUGS (8)
  1. LETAIRIS [Suspect]
     Indication: PULMONARY ARTERIAL HYPERTENSION
     Route: 048
     Dates: start: 20090213
  2. REMODULIN [Concomitant]
  3. COUMADIN [Concomitant]
  4. HYDROCHLOROTHIAZIDE [Concomitant]
  5. POTASSIUM CHLORIDE [Concomitant]
  6. LEVOTHYROXINE [Concomitant]
  7. CLEOCIN HYDROCHLORIDE [Concomitant]
  8. TYLENOL EXTRA STRENGTH [Concomitant]

REACTIONS (2)
  - Cardiac flutter [Unknown]
  - Palpitations [Unknown]
